FAERS Safety Report 5397303-3 (Version None)
Quarter: 2007Q3

REPORT INFORMATION
  Report Type: 
  Country: None (occurrence: None)
  Receive Date: 20070723
  Receipt Date: 20070710
  Transmission Date: 20080115
  Serious: Yes (Hospitalization)
  Sender: FDA-Public Use
  Company Number: 2007-02424

PATIENT
  Age: 83 Year
  Sex: Male

DRUGS (2)
  1. VELCADE [Suspect]
     Indication: MULTIPLE MYELOMA
     Dates: start: 20070531
  2. DEXAMETHASONE 0.5MG TAB [Concomitant]

REACTIONS (2)
  - DIVERTICULUM [None]
  - PERITONITIS [None]
